FAERS Safety Report 18898423 (Version 1)
Quarter: 2021Q1

REPORT INFORMATION
  Report Type: Spontaneous
  Country: TR (occurrence: TR)
  Receive Date: 20210216
  Receipt Date: 20210216
  Transmission Date: 20210420
  Serious: Yes (Other)
  Sender: FDA-Public Use
  Company Number: NVSC2021TR028359

PATIENT
  Age: 62 Year
  Sex: Female

DRUGS (3)
  1. RIBOCICLIB. [Suspect]
     Active Substance: RIBOCICLIB
     Indication: BREAST CANCER
     Dosage: UNK
     Route: 065
  2. LETROZOL [Suspect]
     Active Substance: LETROZOLE
     Indication: BREAST CANCER
     Dosage: UNK
     Route: 065
     Dates: start: 202002
  3. DENOSUMAB [Suspect]
     Active Substance: DENOSUMAB
     Indication: BREAST CANCER
     Dosage: UNK
     Route: 065
     Dates: start: 202002

REACTIONS (4)
  - Metastatic neoplasm [Unknown]
  - Neutropenia [Unknown]
  - Metastases to abdominal cavity [Unknown]
  - Metastases to lymph nodes [Unknown]
